FAERS Safety Report 5750462-2 (Version None)
Quarter: 2008Q2

REPORT INFORMATION
  Report Type: 
  Country: None (occurrence: None)
  Receive Date: 20080528
  Receipt Date: 20070928
  Transmission Date: 20081010
  Serious: No
  Sender: FDA-Public Use
  Company Number: US-KINGPHARMUSA00001-K200701268

PATIENT

DRUGS (12)
  1. AVINZA [Suspect]
     Indication: BACK PAIN
     Dosage: UNK MG, QD
     Route: 048
     Dates: start: 20070601, end: 20070601
  2. AVINZA [Suspect]
     Dosage: UNK MG, QD
     Route: 048
     Dates: start: 20070601
  3. AVINZA [Suspect]
     Dosage: 120 MG, QD
     Route: 048
     Dates: start: 20070920
  4. PREMARIN [Concomitant]
     Indication: HORMONE REPLACEMENT THERAPY
     Dosage: .09 UNK, UNK
  5. SYNTHROID [Concomitant]
  6. CYTOMEL [Concomitant]
  7. ZOLOFT [Concomitant]
     Indication: DEPRESSION
     Dosage: 100 MG, BID
     Route: 048
  8. ZYRTEC [Concomitant]
     Indication: URTICARIA
     Dosage: 10 MG, QHS
     Route: 048
  9. ALLEGRA [Concomitant]
     Indication: URTICARIA
     Dosage: 180 MG, QD
     Route: 048
  10. SINGULAIR [Concomitant]
     Indication: URTICARIA
     Dosage: 10 MG, UNK
     Route: 048
  11. EPIPEN/00003901/ [Concomitant]
     Indication: URTICARIA
     Dosage: UNK, PRN
  12. BENADRYL [Concomitant]
     Indication: URTICARIA
     Dosage: UNK, PRN

REACTIONS (1)
  - SKIN DISORDER [None]
